FAERS Safety Report 6173950-6 (Version None)
Quarter: 2009Q2

REPORT INFORMATION
  Report Type: 
  Country: None (occurrence: None)
  Receive Date: 20090430
  Receipt Date: 20090422
  Transmission Date: 20091009
  Serious: Yes (Other)
  Sender: FDA-Public Use
  Company Number: GB-PFIZER INC-2009201595

PATIENT

DRUGS (5)
  1. DOXAZOSIN MESYLATE [Suspect]
     Indication: ESSENTIAL HYPERTENSION
     Dosage: 2 MG, UNK
     Dates: start: 20090216, end: 20090415
  2. ASPIRIN [Concomitant]
  3. BENDROFLUMETHIAZIDE [Concomitant]
  4. GLICLAZIDE [Concomitant]
  5. SIMVASTATIN [Concomitant]

REACTIONS (1)
  - URINARY INCONTINENCE [None]
